FAERS Safety Report 10452573 (Version 1)
Quarter: 2014Q3

REPORT INFORMATION
  Report Type: Spontaneous
  Country: US (occurrence: US)
  Receive Date: 20140915
  Receipt Date: 20140915
  Transmission Date: 20150326
  Serious: No
  Sender: FDA-Public Use
  Company Number: US-PFIZER INC-2014250451

PATIENT
  Age: 64 Year
  Sex: Male

DRUGS (2)
  1. LOMOTIL [Suspect]
     Active Substance: ATROPINE SULFATE\DIPHENOXYLATE HYDROCHLORIDE
     Dosage: UNK, 2X/DAY (TWICE A DAY )
  2. VOTRIENT [Concomitant]
     Active Substance: PAZOPANIB HYDROCHLORIDE
     Dosage: 800 MG, DAILY

REACTIONS (2)
  - Joint injury [Unknown]
  - Bone pain [Unknown]

NARRATIVE: CASE EVENT DATE: 20120116
